FAERS Safety Report 7057014-5 (Version None)
Quarter: 2010Q4

REPORT INFORMATION
  Report Type: 
  Country: None (occurrence: None)
  Receive Date: 20101021
  Receipt Date: 20101021
  Transmission Date: 20110411
  Serious: Yes (Other)
  Sender: FDA-Public Use
  Company Number: None

PATIENT
  Age: 36 Year
  Sex: Male
  Weight: 70.3075 kg

DRUGS (1)
  1. OXYCONTIN [Suspect]
     Dosage: 1 TABLET 3TIMES DAILY PO
     Route: 048

REACTIONS (5)
  - CONSTIPATION [None]
  - HAEMATOCHEZIA [None]
  - NAUSEA [None]
  - PRODUCT SUBSTITUTION ISSUE [None]
  - VOMITING [None]
